FAERS Safety Report 5873706-5 (Version None)
Quarter: 2008Q3

REPORT INFORMATION
  Report Type: 
  Country: None (occurrence: None)
  Receive Date: 20080908
  Receipt Date: 20080903
  Transmission Date: 20090109
  Serious: Yes (Other)
  Sender: FDA-Public Use
  Company Number: D0058586A

PATIENT

DRUGS (2)
  1. HYCAMTIN [Suspect]
     Route: 065
  2. RADIOTHERAPY [Suspect]

REACTIONS (1)
  - PNEUMONITIS [None]
